FAERS Safety Report 4869538-7 (Version None)
Quarter: 2005Q4

REPORT INFORMATION
  Report Type: 
  Country: None (occurrence: None)
  Receive Date: 20051230
  Receipt Date: 20051219
  Transmission Date: 20060501
  Serious: Yes (Hospitalization)
  Sender: FDA-Public Use
  Company Number: US-KINGPHARMUSA00001-K200501617

PATIENT
  Age: 75 Year
  Sex: Female

DRUGS (6)
  1. ALTACE [Suspect]
     Dosage: 5 MG, QD
     Route: 048
  2. ALDACTONE [Suspect]
     Dosage: 50 MG, QD
     Route: 048
     Dates: end: 20050818
  3. SEGURIL [Concomitant]
     Dosage: 360 MG, UNK
     Route: 048
  4. MASDIL [Concomitant]
     Dosage: 480 MG, UNK
     Route: 048
  5. TROMALYT [Concomitant]
     Dosage: 150 MG, UNK
     Route: 048
  6. SALBUTAMOL [Concomitant]
     Dosage: UNK, UNK

REACTIONS (5)
  - BLOOD UREA INCREASED [None]
  - BRADYCARDIA [None]
  - DEHYDRATION [None]
  - HYPERKALAEMIA [None]
  - HYPOTENSION [None]
